FAERS Safety Report 8342174-6 (Version None)
Quarter: 2012Q2

REPORT INFORMATION
  Report Type: 
  Country: None (occurrence: None)
  Receive Date: 20120507
  Receipt Date: 20120206
  Transmission Date: 20120825
  Serious: Yes (Other)
  Sender: FDA-Public Use
  Company Number: PHHY2012CA036921

PATIENT
  Sex: Female

DRUGS (3)
  1. TASIGNA [Suspect]
     Dosage: 200 MG,
     Route: 048
  2. TASIGNA [Suspect]
     Indication: CHRONIC MYELOID LEUKAEMIA
     Dosage: 400 MG,
     Route: 048
  3. OXYCODONE HCL [Suspect]

REACTIONS (7)
  - ARTHRALGIA [None]
  - ASTHMA [None]
  - GASTRIC HAEMORRHAGE [None]
  - FIBROMYALGIA [None]
  - BLOOD IRON ABNORMAL [None]
  - FATIGUE [None]
  - CONSTIPATION [None]
